FAERS Safety Report 18980309 (Version 1)
Quarter: 2021Q1

REPORT INFORMATION
  Report Type: Spontaneous
  Country: US (occurrence: US)
  Receive Date: 20210305
  Receipt Date: 20210305
  Transmission Date: 20210420
  Serious: Yes (Other)
  Sender: FDA-Public Use
  Company Number: None

PATIENT
  Age: 52 Year
  Sex: Male
  Weight: 82 kg

DRUGS (8)
  1. NIFEDIPINE. [Concomitant]
     Active Substance: NIFEDIPINE
  2. LABETALOL [Concomitant]
     Active Substance: LABETALOL\LABETALOL HYDROCHLORIDE
  3. CLONIDINE. [Concomitant]
     Active Substance: CLONIDINE
  4. TRIFERIC [Suspect]
     Active Substance: FERRIC PYROPHOSPHATE CITRATE
     Indication: HAEMODIALYSIS
     Dosage: ?          QUANTITY:1PK?}25 GALLS H20;OTHER FREQUENCY:EVERY DIALYSIS TX;OTHER ROUTE:ADM VIA THE CENTRAL BICARB LOOP?
     Dates: start: 20201102, end: 20201202
  5. TRIFERIC [Suspect]
     Active Substance: FERRIC PYROPHOSPHATE CITRATE
     Indication: IRON METABOLISM DISORDER
     Dosage: ?          QUANTITY:1PK?}25 GALLS H20;OTHER FREQUENCY:EVERY DIALYSIS TX;OTHER ROUTE:ADM VIA THE CENTRAL BICARB LOOP?
     Dates: start: 20201102, end: 20201202
  6. SINEMET [Concomitant]
     Active Substance: CARBIDOPA\LEVODOPA
  7. PAROXETINE. [Concomitant]
     Active Substance: PAROXETINE
  8. SEVELAMER [Concomitant]
     Active Substance: SEVELAMER

REACTIONS (2)
  - Thrombosis in device [None]
  - Haemodialysis [None]

NARRATIVE: CASE EVENT DATE: 20210211
